FAERS Safety Report 9372176 (Version 1)
Quarter: 2013Q2

REPORT INFORMATION
  Report Type: Spontaneous
  Country: US (occurrence: None)
  Receive Date: 20130618
  Receipt Date: 20130618
  Transmission Date: 20140414
  Serious: Yes (Hospitalization, Other)
  Sender: FDA-Public Use
  Company Number: 2013PROUSA02836

PATIENT
  Age: 94 Year
  Sex: Male
  Weight: 79.4 kg

DRUGS (14)
  1. PROVENGE (SIPULEUCEL-T) SUSPENSION, 250ML [Suspect]
     Indication: PROSTATE CANCER METASTATIC
     Dosage: 250 ML, SINGLE, INTRAAVENOUS
     Route: 042
     Dates: start: 20130503, end: 20130503
  2. CALTRATE + D (CALCIUM CARBONATE, COLECALCIFEROL) [Concomitant]
  3. NEXIUM (ESOMEPRAZOLE MAGNESIUM) [Concomitant]
  4. PEPTO-BISMOL (BISMUTH SUBSALICYLATE) [Concomitant]
  5. OVAR (BECLOMETASONE DIPROPIONAE) AEROSOL (SPRAY AND INHALATION) [Concomitant]
  6. TUMS (CALCIUM CARBONAE, MAGNESIUM CARBONATE, MGNESIUM TRISILICATE) [Concomitant]
  7. VITAMIN D3 (COLECALCIFEROL) [Concomitant]
  8. ASPIRIN (ACETYLSALICYLC ACID) [Concomitant]
  9. FLUTICASONE (FLUTICASOE PROPIONATE) [Concomitant]
  10. LEVOTHYROXINE (LEVOTHYROXINE SODIUM) [Concomitant]
  11. LISINOPRIL (LISINOPRIL) [Concomitant]
  12. MELOXICAM (MELOXICAM) [Concomitant]
  13. TYLENOL (PARACETAMOL) [Concomitant]
  14. VITAMIN B12 (CYANOCOBALAMIN) [Concomitant]

REACTIONS (21)
  - Blood creatinine increased [None]
  - Device related infection [None]
  - Dyspnoea [None]
  - Tremor [None]
  - Pyrexia [None]
  - Hypersensitivity [None]
  - Anxiety [None]
  - Pneumonia [None]
  - Transfusion reaction [None]
  - Cyanosis [None]
  - Infusion site bruising [None]
  - Agitation [None]
  - Metabolic acidosis [None]
  - Benign prostatic hyperplasia [None]
  - Urinary retention [None]
  - Dysphagia [None]
  - Gastrooesophageal reflux disease [None]
  - Oesophageal stenosis [None]
  - Hypoxia [None]
  - Hypertension [None]
  - Chills [None]
